FAERS Safety Report 8607009-2 (Version None)
Quarter: 2012Q3

REPORT INFORMATION
  Report Type: 
  Country: None (occurrence: None)
  Receive Date: 20120820
  Receipt Date: 20120808
  Transmission Date: 20120928
  Serious: Yes (Hospitalization)
  Sender: FDA-Public Use
  Company Number: FR-TEVA-352799ISR

PATIENT
  Age: 55 Year
  Sex: Female

DRUGS (3)
  1. CARBOPLATIN [Suspect]
     Indication: OVARIAN CANCER RECURRENT
     Dosage: 510 MILLIGRAM DAILY;
     Route: 042
     Dates: start: 20120619, end: 20120730
  2. SOLU-MEDROL [Concomitant]
     Indication: PREMEDICATION
     Route: 042
     Dates: start: 20120730
  3. PACLITAXEL [Suspect]
     Indication: OVARIAN CANCER RECURRENT
     Dosage: 258 MILLIGRAM DAILY;
     Route: 042
     Dates: start: 20120730, end: 20120730

REACTIONS (6)
  - VOMITING [None]
  - ABDOMINAL PAIN [None]
  - TACHYCARDIA [None]
  - SKIN BURNING SENSATION [None]
  - HYPERSENSITIVITY [None]
  - ERYTHEMA [None]
